FAERS Safety Report 10775774 (Version 1)
Quarter: 2015Q1

REPORT INFORMATION
  Report Type: Spontaneous
  Country: US (occurrence: US)
  Receive Date: 20150209
  Receipt Date: 20150209
  Transmission Date: 20150721
  Serious: No
  Sender: FDA-Public Use
  Company Number: US-BAYER-2015-018270

PATIENT
  Age: 80 Year
  Sex: Female

DRUGS (2)
  1. CIPRO [Suspect]
     Active Substance: CIPROFLOXACIN HYDROCHLORIDE
     Indication: CYSTITIS
     Dosage: UNK
     Dates: start: 2014
  2. BAYER ASPIRIN FAST RELEASE POWDER [Concomitant]

REACTIONS (3)
  - Hypersensitivity [None]
  - Pain in extremity [None]
  - Muscle spasms [None]

NARRATIVE: CASE EVENT DATE: 2014
